FAERS Safety Report 7626461-2 (Version None)
Quarter: 2011Q3

REPORT INFORMATION
  Report Type: 
  Country: None (occurrence: None)
  Receive Date: 20110721
  Receipt Date: 20110718
  Transmission Date: 20111222
  Serious: Yes (Other)
  Sender: FDA-Public Use
  Company Number: CA-PFIZER INC-2011163261

PATIENT
  Age: 45 Year
  Sex: Male
  Weight: 102.04 kg

DRUGS (2)
  1. CELEBREX [Suspect]
     Dosage: 200 MG, UNK
     Dates: start: 20110601, end: 20110601
  2. CELEBREX [Suspect]
     Indication: INFLAMMATION
     Dosage: 200 MG, UNK
     Route: 048
     Dates: start: 20100101, end: 20100101

REACTIONS (2)
  - LACTOSE INTOLERANCE [None]
  - FAECAL INCONTINENCE [None]
